FAERS Safety Report 6240897-6 (Version None)
Quarter: 2009Q2

REPORT INFORMATION
  Report Type: 
  Country: None (occurrence: None)
  Receive Date: 20090619
  Receipt Date: 20090605
  Transmission Date: 20091009
  Serious: Yes (Death, Hospitalization)
  Sender: FDA-Public Use
  Company Number: KADN20090056

PATIENT
  Age: 43 Year
  Sex: Male

DRUGS (8)
  1. MORPHINE [Suspect]
     Indication: DRUG USE FOR UNKNOWN INDICATION
     Dosage: INGESTION
  2. AMITRIPTYLINE HCL 100MG TAB [Suspect]
     Indication: DRUG USE FOR UNKNOWN INDICATION
     Dosage: INGESTION
  3. LISINOPRIL [Suspect]
     Indication: DRUG USE FOR UNKNOWN INDICATION
     Dosage: INGESTION
     Route: 048
  4. NAPROXEN [Suspect]
     Indication: DRUG USE FOR UNKNOWN INDICATION
     Dosage: INGESTION
     Route: 048
  5. BACLOFEN [Suspect]
     Indication: DRUG USE FOR UNKNOWN INDICATION
     Dosage: INGESTION
     Route: 048
  6. GABAPENTIN [Suspect]
     Indication: DRUG USE FOR UNKNOWN INDICATION
     Dosage: INGESTION
     Route: 048
  7. VENLAFAXINE HYDROCHLORIDE [Suspect]
     Indication: DRUG USE FOR UNKNOWN INDICATION
     Dosage: INGESTION
     Route: 048
  8. ETHANOL [Suspect]
     Indication: DRUG USE FOR UNKNOWN INDICATION
     Dosage: INGESTION
     Route: 048

REACTIONS (19)
  - ACIDOSIS [None]
  - ALANINE AMINOTRANSFERASE INCREASED [None]
  - ANOXIC ENCEPHALOPATHY [None]
  - APALLIC SYNDROME [None]
  - ASPARTATE AMINOTRANSFERASE INCREASED [None]
  - BLOOD CREATININE INCREASED [None]
  - BLOOD UREA INCREASED [None]
  - BUNDLE BRANCH BLOCK [None]
  - CEREBRAL INFARCTION [None]
  - COMA [None]
  - COMPLETED SUICIDE [None]
  - HEART RATE INCREASED [None]
  - HYPOTENSION [None]
  - HYPOXIA [None]
  - LUNG DISORDER [None]
  - MULTIPLE DRUG OVERDOSE [None]
  - PNEUMONIA [None]
  - RESPIRATORY RATE INCREASED [None]
  - VENTRICULAR FIBRILLATION [None]
